FAERS Safety Report 15805081 (Version 1)
Quarter: 2019Q1

REPORT INFORMATION
  Report Type: Spontaneous
  Country: ES (occurrence: ES)
  Receive Date: 20190110
  Receipt Date: 20190110
  Transmission Date: 20190417
  Serious: Yes (Hospitalization)
  Sender: FDA-Public Use
  Company Number: ES-TEVA-2019-ES-997027

PATIENT
  Age: 92 Year
  Sex: Female

DRUGS (2)
  1. LEVOFLOXACINO (2791A) [Suspect]
     Active Substance: LEVOFLOXACIN
     Dosage: 500 MILLIGRAM DAILY; 500 MG DIA
     Route: 048
     Dates: start: 20180212, end: 20180213
  2. ADIRO 100 [Concomitant]
     Active Substance: ASPIRIN
     Dosage: 0-1-0
     Route: 048
     Dates: start: 20120101

REACTIONS (2)
  - Diarrhoea [Recovered/Resolved]
  - Hyponatraemia [Recovered/Resolved]

NARRATIVE: CASE EVENT DATE: 20180213
